FAERS Safety Report 6512095-X (Version None)
Quarter: 2009Q4

REPORT INFORMATION
  Report Type: 
  Country: None (occurrence: None)
  Receive Date: 20091222
  Receipt Date: 20090602
  Transmission Date: 20100525
  Serious: No
  Sender: FDA-Public Use
  Company Number: US-ASTRAZENECA-2009UW14021

PATIENT
  Sex: Male
  Weight: 136.1 kg

DRUGS (3)
  1. CRESTOR [Suspect]
     Route: 048
     Dates: start: 20090501
  2. SYNTHROID [Concomitant]
  3. FLOMAX [Concomitant]

REACTIONS (1)
  - BACK PAIN [None]
